FAERS Safety Report 7767560-4 (Version None)
Quarter: 2011Q3

REPORT INFORMATION
  Report Type: 
  Country: None (occurrence: None)
  Receive Date: 20110922
  Receipt Date: 20110914
  Transmission Date: 20111222
  Serious: Yes (Life-Threatening, Hospitalization)
  Sender: FDA-Public Use
  Company Number: US-ASTELLAS-2011US002642

PATIENT

DRUGS (27)
  1. ANTIVERT [Concomitant]
     Indication: VERTIGO
     Dosage: 25 MG, TID
     Route: 048
     Dates: start: 20040101
  2. EPHEDRA [Concomitant]
     Indication: PRODUCT USED FOR UNKNOWN INDICATION
     Dosage: UNK
     Route: 065
  3. KEPPRA [Concomitant]
     Indication: CONVULSION PROPHYLAXIS
     Dosage: 500 MG, BID
     Route: 048
     Dates: start: 20101201
  4. MYFORTIC [Concomitant]
     Indication: RENAL TRANSPLANT
     Dosage: 360 MG, BID
     Route: 048
     Dates: start: 20060101
  5. PAMELOR [Concomitant]
     Indication: PRODUCT USED FOR UNKNOWN INDICATION
     Dosage: 10 MG, UID/QD
     Route: 048
     Dates: start: 20090101
  6. LORTAB [Concomitant]
     Indication: ABDOMINAL PAIN
     Dosage: 1 DF, Q 4 HOURS
     Route: 048
     Dates: start: 20060531
  7. COLACE [Concomitant]
     Indication: CONSTIPATION
     Dosage: 25 MG, PRN
     Route: 048
     Dates: start: 20101201
  8. LACTOBACILLUS [Concomitant]
     Indication: GASTROINTESTINAL DISORDER
     Dosage: 1 DF, UID/QD
     Route: 065
     Dates: start: 20100101
  9. PROGRAF [Suspect]
     Indication: RENAL TRANSPLANT
     Dosage: 8 MG, UID/QD
     Route: 048
     Dates: start: 20060531
  10. PROTONIX [Concomitant]
     Indication: PRODUCT USED FOR UNKNOWN INDICATION
     Dosage: 40 MG, BID
     Route: 048
  11. BETHANECHOL [Concomitant]
     Indication: GASTROINTESTINAL DISORDER
     Dosage: 25 MG, TID
     Route: 048
     Dates: start: 20070101
  12. ASTELIN [Concomitant]
     Indication: HYPERSENSITIVITY
     Dosage: 2 DF, BID
     Route: 045
     Dates: start: 19810101
  13. TAMSULOSIN HCL [Concomitant]
     Indication: BLOOD MAGNESIUM
     Dosage: 128 MG, UID/QD
     Route: 048
     Dates: start: 20080101
  14. DITROPAN [Concomitant]
     Indication: INCONTINENCE
     Dosage: 5 MG, TID
     Route: 048
     Dates: start: 20060101
  15. HECTOROL [Concomitant]
     Indication: PRODUCT USED FOR UNKNOWN INDICATION
     Dosage: UNK
     Route: 065
  16. LYRICA [Concomitant]
     Indication: NEUROPATHY PERIPHERAL
     Dosage: 50 MG, BID
     Route: 048
     Dates: start: 20060101
  17. BACTRIM [Concomitant]
     Indication: ANTIBIOTIC THERAPY
     Dosage: 400 MG, 3XWEEKLY
     Route: 048
     Dates: start: 20060531
  18. DIAZEPAM [Concomitant]
     Indication: PAIN
     Dosage: 2 MG IN THE EVENING
     Route: 048
     Dates: start: 20110201
  19. APIDRA [Concomitant]
     Indication: DIABETES MELLITUS
     Dosage: UNK
     Route: 050
     Dates: start: 20080101
  20. LANTUS [Concomitant]
     Indication: PRODUCT USED FOR UNKNOWN INDICATION
     Dosage: 12 U, QHS
     Route: 058
  21. ZOFRAN [Concomitant]
     Indication: NAUSEA
     Dosage: 4 MG AS NEEDED EVERY 4 HOURS
     Route: 048
     Dates: start: 20101201
  22. PEPPERMINT [Concomitant]
     Indication: PRODUCT USED FOR UNKNOWN INDICATION
     Dosage: 1 DF, BID
     Route: 048
  23. ZEMPLAR [Concomitant]
     Indication: VITAMIN C
     Dosage: 1 MG, UID/QD
     Route: 048
     Dates: start: 20080101
  24. OXYCODONE HCL [Concomitant]
     Indication: PRODUCT USED FOR UNKNOWN INDICATION
     Dosage: 15 MG AS NEEDED EVERY 4 HOURS
     Route: 048
  25. SENOKOT [Concomitant]
     Indication: CONSTIPATION PROPHYLAXIS
     Dosage: 2 TABLETS IN THE EVENING
     Route: 065
     Dates: start: 20101201
  26. SLOW MAG [Concomitant]
     Indication: PRODUCT USED FOR UNKNOWN INDICATION
     Dosage: 64 MG, BID
     Route: 048
  27. CINNAMON [Concomitant]
     Indication: PRODUCT USED FOR UNKNOWN INDICATION
     Dosage: 2 DF, BID
     Route: 048

REACTIONS (13)
  - HOSPITALISATION [None]
  - VOMITING [None]
  - COAGULOPATHY [None]
  - HEAD INJURY [None]
  - BACK INJURY [None]
  - SUBDURAL HAEMATOMA [None]
  - FALL [None]
  - DIARRHOEA [None]
  - WRIST FRACTURE [None]
  - VERTIGO [None]
  - ACCIDENTAL OVERDOSE [None]
  - ABDOMINAL PAIN [None]
  - PARALYSIS FLACCID [None]
